FAERS Safety Report 5176895-3 (Version None)
Quarter: 2006Q4

REPORT INFORMATION
  Report Type: 
  Country: None (occurrence: None)
  Receive Date: 20061206
  Receipt Date: 20061130
  Transmission Date: 20070319
  Serious: Yes (Other)
  Sender: FDA-Public Use
  Company Number: GB-2006-027933

PATIENT
  Age: 70 Year
  Sex: Male

DRUGS (1)
  1. ULTRAVIST (PHARMACY BULK) [Suspect]
     Indication: COMPUTERISED TOMOGRAM
     Dates: start: 20060523, end: 20060523

REACTIONS (3)
  - ANEURYSM RUPTURED [None]
  - DIALYSIS [None]
  - RENAL FAILURE ACUTE [None]
